FAERS Safety Report 6978698-3 (Version None)
Quarter: 2010Q3

REPORT INFORMATION
  Report Type: 
  Country: None (occurrence: None)
  Receive Date: 20100913
  Receipt Date: 20100908
  Transmission Date: 20110219
  Serious: Yes (Hospitalization)
  Sender: FDA-Public Use
  Company Number: A0880583A

PATIENT
  Age: 36 Year
  Sex: Female
  Weight: 59.1 kg

DRUGS (4)
  1. LAMICTAL [Suspect]
     Indication: SCHIZOAFFECTIVE DISORDER BIPOLAR TYPE
     Dosage: 25MG PER DAY
     Route: 048
  2. GEODON [Suspect]
     Indication: SCHIZOAFFECTIVE DISORDER BIPOLAR TYPE
     Dosage: 60MG UNKNOWN
     Route: 048
  3. GEODON [Suspect]
     Dosage: 80MG PER DAY
     Route: 048
  4. UNSPECIFIED MEDICATION [Concomitant]

REACTIONS (4)
  - ANXIETY [None]
  - CIRCUMSTANCE OR INFORMATION CAPABLE OF LEADING TO MEDICATION ERROR [None]
  - SOMNOLENCE [None]
  - STRESS [None]
